FAERS Safety Report 4986053-0 (Version None)
Quarter: 2006Q2

REPORT INFORMATION
  Report Type: 
  Country: None (occurrence: None)
  Receive Date: 20060428
  Receipt Date: 20060215
  Transmission Date: 20061013
  Serious: Yes (Hospitalization)
  Sender: FDA-Public Use
  Company Number: 2006AP01015

PATIENT
  Age: 25342 Day
  Sex: Female
  Weight: 45 kg

DRUGS (10)
  1. IRESSA [Suspect]
     Indication: ADENOSQUAMOUS CELL LUNG CANCER
     Route: 048
     Dates: start: 20060120, end: 20060203
  2. IRESSA [Suspect]
     Route: 048
     Dates: start: 20060217, end: 20060306
  3. BARAMYCIN [Concomitant]
     Indication: METASTASES TO SKIN
     Dates: start: 20050901
  4. GASMOTIN [Concomitant]
     Indication: STOMACH DISCOMFORT
     Route: 048
     Dates: start: 20060112, end: 20060202
  5. CODEINE PHOSPHATE [Concomitant]
     Indication: COUGH
     Route: 048
     Dates: start: 20060112
  6. MYSLEE [Concomitant]
     Indication: INSOMNIA
     Route: 048
     Dates: start: 20060126, end: 20060306
  7. INDOMETHACIN [Concomitant]
     Indication: PAIN
     Route: 054
     Dates: start: 20060128
  8. SELTOUCH [Concomitant]
     Indication: PAIN
     Dates: start: 20060130
  9. CARBOPLATIN [Concomitant]
     Dosage: 4 COURSES RELATIVELY SMALL DOSES
     Dates: start: 20050101
  10. VINORELBINE [Concomitant]
     Dosage: 4 COURSES RELATIVELY SMALL DOSES
     Dates: start: 20050101

REACTIONS (3)
  - DIARRHOEA [None]
  - PLATELET COUNT DECREASED [None]
  - PYREXIA [None]
